FAERS Safety Report 6214457-7 (Version None)
Quarter: 2009Q2

REPORT INFORMATION
  Report Type: 
  Country: None (occurrence: None)
  Receive Date: 20090604
  Receipt Date: 20090526
  Transmission Date: 20091009
  Serious: Yes (Hospitalization, Other)
  Sender: FDA-Public Use
  Company Number: DK-ASTRAZENECA-2009SE01970

PATIENT
  Age: 28705 Day
  Sex: Male
  Weight: 77 kg

DRUGS (4)
  1. LIDOCAINE [Suspect]
     Indication: LOCAL ANAESTHESIA
  2. ZOLEDRONIC ACID (ACLASTA) VS PLACEBO CODE NOT BROKEN [Concomitant]
     Indication: OSTEOPOROSIS
     Route: 042
     Dates: start: 20071025
  3. VITAMIN D [Concomitant]
  4. CALCIUM [Concomitant]

REACTIONS (3)
  - DIZZINESS [None]
  - FLUSHING [None]
  - HYPERSENSITIVITY [None]
